FAERS Safety Report 10011679 (Version 1)
Quarter: 2014Q1

REPORT INFORMATION
  Report Type: Spontaneous
  Country: US (occurrence: None)
  Receive Date: 20140312
  Receipt Date: 20140312
  Transmission Date: 20141002
  Serious: Yes (Other)
  Sender: FDA-Public Use
  Company Number: UTC-041450

PATIENT
  Age: 72 Year
  Sex: Female
  Weight: 75.4 kg

DRUGS (3)
  1. REMODULIN [Suspect]
     Indication: PULMONARY ARTERIAL HYPERTENSION
     Dosage: (0.0308 UG/KG, 1 IN 1MIN)
     Route: 041
     Dates: start: 20090101
  2. VIAGRA (SILDENAFIL) [Concomitant]
  3. REVATION (SILDENAFIL CITRATE) [Concomitant]

REACTIONS (2)
  - Cystic fibrosis lung [None]
  - Herpes zoster [None]
